FAERS Safety Report 7522960-2 (Version None)
Quarter: 2011Q2

REPORT INFORMATION
  Report Type: 
  Country: None (occurrence: None)
  Receive Date: 20110603
  Receipt Date: 20110526
  Transmission Date: 20111010
  Serious: Yes (Life-Threatening, Other)
  Sender: FDA-Public Use
  Company Number: JP-BRISTOL-MYERS SQUIBB COMPANY-15562788

PATIENT
  Age: 73 Year
  Sex: Male
  Weight: 66 kg

DRUGS (9)
  1. ROHYPNOL [Concomitant]
     Dosage: TABLET
     Dates: start: 20100907
  2. ABILIFY [Suspect]
     Indication: DYSTHYMIC DISORDER
     Route: 048
     Dates: start: 20100903, end: 20110207
  3. LANDSEN [Concomitant]
     Dosage: TABS
     Dates: start: 20100907
  4. MIRTAZAPINE [Suspect]
     Indication: DEPRESSION
     Dosage: 15 MG TWICE DAILY FROM 15FEB10-13FEB11(355DAYS)AND 15MG ONCE DAILY FROM 14FEB-07MAR11(31DAYS); TABS
     Route: 048
     Dates: start: 20100215, end: 20110307
  5. TETRAMIDE [Suspect]
     Indication: DEPRESSION
     Route: 048
     Dates: start: 20100519, end: 20110207
  6. AMARYL [Suspect]
     Dosage: TABS
     Route: 048
     Dates: end: 20110104
  7. VESICARE [Concomitant]
     Dosage: TABS
  8. LENDORMIN [Concomitant]
     Dosage: TABS
  9. HALCION [Concomitant]
     Dosage: TABS

REACTIONS (1)
  - AGRANULOCYTOSIS [None]
